FAERS Safety Report 5935319-6 (Version None)
Quarter: 2008Q4

REPORT INFORMATION
  Report Type: 
  Country: None (occurrence: None)
  Receive Date: 20081030
  Receipt Date: 20081028
  Transmission Date: 20090506
  Serious: Yes (Other)
  Sender: FDA-Public Use
  Company Number: FR-BRISTOL-MYERS SQUIBB COMPANY-14387021

PATIENT
  Age: 61 Year
  Sex: Female

DRUGS (5)
  1. REYATAZ [Suspect]
     Indication: ANTIRETROVIRAL THERAPY
     Dosage: RECEIVED THIRD ANTIRETROVIRAL THERAPY  INITIATED IN MID SEP
     Dates: start: 20081011, end: 20081014
  2. SUSTIVA [Suspect]
     Indication: ANTIRETROVIRAL THERAPY
     Dates: start: 20080901
  3. NORVIR [Suspect]
     Indication: ANTIRETROVIRAL THERAPY
     Dosage: RECEIVED THIRD ANTIRETROVIRAL THERAPY  INITIATED IN MID SEP
     Dates: start: 20081011, end: 20081014
  4. TRUVADA [Suspect]
     Indication: ANTIRETROVIRAL THERAPY
     Dates: start: 20080901
  5. COMBIVIR [Suspect]
     Indication: ANTIRETROVIRAL THERAPY
     Dosage: RECEIVED THIRD ANTIRETROVIRAL THERAPY
     Dates: start: 20081011, end: 20081014

REACTIONS (2)
  - ANGIOEDEMA [None]
  - URTICARIA PAPULAR [None]
